FAERS Safety Report 13785043 (Version 6)
Quarter: 2018Q1

REPORT INFORMATION
  Report Type: Spontaneous
  Country: JP (occurrence: JP)
  Receive Date: 20170725
  Receipt Date: 20180320
  Transmission Date: 20180508
  Serious: Yes (Hospitalization)
  Sender: FDA-Public Use
  Company Number: PHJP2017JP023394

PATIENT
  Age: 45 Year
  Sex: Male
  Weight: 64 kg

DRUGS (18)
  1. COSENTYX [Suspect]
     Active Substance: SECUKINUMAB
     Indication: PSORIATIC ARTHROPATHY
     Dosage: 300 MG, QW
     Route: 058
     Dates: start: 20150812, end: 20150909
  2. DERMOVATE [Concomitant]
     Active Substance: CLOBETASOL
     Indication: PSORIASIS
     Dosage: 1 G, UNK
     Route: 061
     Dates: end: 20150909
  3. RULID [Concomitant]
     Active Substance: ROXITHROMYCIN
     Indication: FOLLICULITIS
     Dosage: 150 MG, BID
     Route: 048
     Dates: end: 20160106
  4. ANTEBATE [Concomitant]
     Active Substance: BETAMETHASONE DIPROPIONATE
     Indication: PSORIASIS
     Dosage: 1 G, UNK
     Route: 061
     Dates: start: 20150909, end: 20151104
  5. CELECOX [Concomitant]
     Active Substance: CELECOXIB
     Indication: ARTHRALGIA
     Dosage: 100 MG, BID
     Route: 048
     Dates: end: 20151007
  6. TEPRENONE [Concomitant]
     Active Substance: TEPRENONE
     Indication: CHRONIC GASTRITIS
     Dosage: 50 MG, BID
     Route: 048
     Dates: end: 20151007
  7. FEXOFENADINE [Concomitant]
     Active Substance: FEXOFENADINE\FEXOFENADINE HYDROCHLORIDE
     Dosage: 60 MG, BID
     Route: 048
     Dates: start: 20161012, end: 20170705
  8. ZOLPIDEM [Concomitant]
     Active Substance: ZOLPIDEM\ZOLPIDEM TARTRATE
     Indication: INSOMNIA
     Dosage: 10 MG, QD
     Route: 048
     Dates: end: 20170705
  9. DALACIN [Concomitant]
     Active Substance: CLINDAMYCIN
     Indication: PSORIASIS
     Dosage: 1 ML, UNK
     Route: 061
     Dates: end: 20150812
  10. FEXOFENADINE [Concomitant]
     Active Substance: FEXOFENADINE\FEXOFENADINE HYDROCHLORIDE
     Indication: PSORIASIS
     Dosage: 60 MG, BID
     Route: 048
     Dates: start: 20151007, end: 20160330
  11. BONALFA [Concomitant]
     Indication: PSORIASIS
     Dosage: 0.5 G, UNK
     Route: 061
     Dates: end: 20150909
  12. ANTEBATE [Concomitant]
     Active Substance: BETAMETHASONE DIPROPIONATE
     Indication: RASH
  13. COSENTYX [Suspect]
     Active Substance: SECUKINUMAB
     Dosage: 300 MG, 4W
     Route: 058
     Dates: start: 20151007, end: 20170703
  14. DOVONEX [Concomitant]
     Active Substance: CALCIPOTRIENE
     Indication: PSORIASIS
     Dosage: 3 G, UNK
     Route: 061
     Dates: end: 20151104
  15. BUFFERIN [Concomitant]
     Active Substance: ASPIRIN
     Indication: HEADACHE
     Dosage: UNK, PRN
     Route: 048
     Dates: end: 20170705
  16. MARODEX D [Concomitant]
     Indication: PSORIASIS
     Dosage: 0.3 G, UNK
     Route: 061
     Dates: start: 20170118, end: 20170805
  17. LOXOPROFEN NA [Concomitant]
     Active Substance: LOXOPROFEN SODIUM
     Indication: ARTHRALGIA
     Dosage: UNK, PRN
     Route: 048
     Dates: start: 20170118, end: 20170412
  18. EPINASTINE. [Concomitant]
     Active Substance: EPINASTINE HYDROCHLORIDE
     Indication: PSORIASIS
     Dosage: 20 MG, QD
     Route: 048
     Dates: end: 20170705

REACTIONS (6)
  - IgA nephropathy [Not Recovered/Not Resolved]
  - Blood creatinine increased [Unknown]
  - Protein urine present [Unknown]
  - Mesangioproliferative glomerulonephritis [Not Recovered/Not Resolved]
  - Blood urine present [Unknown]
  - Seborrhoeic dermatitis [Recovering/Resolving]

NARRATIVE: CASE EVENT DATE: 20160330
